FAERS Safety Report 6153921-6 (Version None)
Quarter: 2009Q2

REPORT INFORMATION
  Report Type: 
  Country: None (occurrence: None)
  Receive Date: 20090410
  Receipt Date: 20090330
  Transmission Date: 20091009
  Serious: Yes (Death)
  Sender: FDA-Public Use
  Company Number: 2009AP001375

PATIENT
  Age: 26 Year
  Sex: Male

DRUGS (7)
  1. SERTRALINE HCL [Suspect]
  2. BUPROPION HCL [Suspect]
  3. ZOLPIDEM TARTRATE [Suspect]
  4. FLUVOXAMINE MALEATE [Suspect]
  5. ZYPREXA [Suspect]
     Dosage: 20 MG
  6. FLUVOXAMINE MALEATE [Suspect]
  7. OXYCODONE HCL [Suspect]

REACTIONS (9)
  - BLADDER DISTENSION [None]
  - DEPRESSED LEVEL OF CONSCIOUSNESS [None]
  - DEPRESSION [None]
  - DRUG TOXICITY [None]
  - HYPERSOMNIA [None]
  - PNEUMONIA [None]
  - SUICIDAL IDEATION [None]
  - UNRESPONSIVE TO STIMULI [None]
  - VISCERAL CONGESTION [None]
